FAERS Safety Report 4620715-X (Version None)
Quarter: 2005Q1

REPORT INFORMATION
  Report Type: 
  Country: None (occurrence: None)
  Receive Date: 20050325
  Receipt Date: 20050321
  Transmission Date: 20050727
  Serious: Yes (Other)
  Sender: FDA-Public Use
  Company Number: 2005024014

PATIENT
  Age: 67 Year
  Sex: Female
  Weight: 62.1428 kg

DRUGS (10)
  1. LIPITOR [Suspect]
     Indication: BLOOD CHOLESTEROL INCREASED
     Dosage: 10 MG (10 MG, 1 IN 1 D), ORAL
     Route: 048
     Dates: start: 19980701, end: 20050102
  2. PACLITAXEL [Suspect]
     Indication: LUNG NEOPLASM MALIGNANT
     Dosage: (1 IN 21 D)
     Dates: start: 20041104, end: 20050101
  3. METOPROLOL SUCCINATE (METOPROLOL SUCCINATE0 [Concomitant]
  4. ACETYLSALICYLIC ACID SRT [Concomitant]
  5. ESOMEPRAZOEL 9ESOMEPRAZOLE) [Concomitant]
  6. OXYCOCET (OXYCODONE HYDROCHLROIDE, PARACETAMOL) [Concomitant]
  7. FENTANYL [Concomitant]
  8. LISINOPRIL [Concomitant]
  9. ZOLPIDEM TARTRATE [Concomitant]
  10. DOCUSATE SODIUM (DOCUSATE SODIUM) [Concomitant]

REACTIONS (10)
  - ALANINE AMINOTRANSFERASE INCREASED [None]
  - ARTHRALGIA [None]
  - ASPARTATE AMINOTRANSFERASE INCREASED [None]
  - BLOOD ALKALINE PHOSPHATASE INCREASED [None]
  - DRUG INTERACTION [None]
  - GAMMA-GLUTAMYLTRANSFERASE INCREASED [None]
  - LUNG ADENOCARCINOMA [None]
  - LYMPHADENOPATHY [None]
  - MUSCLE SPASMS [None]
  - MYALGIA [None]
